FAERS Safety Report 6634813-2 (Version None)
Quarter: 2010Q1

REPORT INFORMATION
  Report Type: 
  Country: None (occurrence: None)
  Receive Date: 20100315
  Receipt Date: 20100303
  Transmission Date: 20100710
  Serious: Yes (Other)
  Sender: FDA-Public Use
  Company Number: US-PFIZER INC-2010028490

PATIENT
  Sex: Female
  Weight: 99.7 kg

DRUGS (3)
  1. VIBRAMYCIN [Suspect]
     Indication: SINUSITIS
     Dosage: 100 MG, 2X/DAY
     Dates: start: 20100225
  2. VERAPAMIL [Concomitant]
     Indication: HYPERTENSION
     Dosage: UNK
  3. CLARITIN [Concomitant]
     Indication: HYPERSENSITIVITY

REACTIONS (1)
  - DRUG DEPENDENCE [None]
